FAERS Safety Report 25628691 (Version 2)
Quarter: 2025Q3

REPORT INFORMATION
  Report Type: Report from Study
  Country: US (occurrence: US)
  Receive Date: 20250731
  Receipt Date: 20250916
  Transmission Date: 20251020
  Serious: Yes (Hospitalization)
  Sender: TAIHO ONCOLOGY INC
  Company Number: US-TAIHOP-2025-007359

PATIENT
  Age: 74 Year
  Sex: Female

DRUGS (1)
  1. LONSURF [Suspect]
     Active Substance: TIPIRACIL HYDROCHLORIDE\TRIFLURIDINE
     Indication: Product used for unknown indication
     Dosage: FORM STRENGTH AND CYCLE WERE UNKNOWN
     Route: 048

REACTIONS (5)
  - Urinary tract infection [Unknown]
  - Cognitive disorder [Unknown]
  - Product dose omission in error [Unknown]
  - Product administration error [Unknown]
  - Therapy non-responder [Unknown]
